FAERS Safety Report 4638005-8 (Version None)
Quarter: 2005Q2

REPORT INFORMATION
  Report Type: 
  Country: None (occurrence: None)
  Receive Date: 20050415
  Receipt Date: 20050325
  Transmission Date: 20051028
  Serious: Yes (Disabling)
  Sender: FDA-Public Use
  Company Number: USA050394093

PATIENT
  Sex: Male

DRUGS (2)
  1. HUMULIN R [Suspect]
  2. LANTUS [Concomitant]

REACTIONS (2)
  - ABASIA [None]
  - BLOOD GLUCOSE INCREASED [None]
